FAERS Safety Report 9233846 (Version 1)
Quarter: 2013Q2

REPORT INFORMATION
  Report Type: Spontaneous
  Country: US (occurrence: US)
  Receive Date: 20130416
  Receipt Date: 20130416
  Transmission Date: 20140414
  Serious: No
  Sender: FDA-Public Use
  Company Number: US-BANPHARM-20120095

PATIENT
  Age: 54 Year
  Sex: Male
  Weight: 113.63 kg

DRUGS (1)
  1. ALEVE LIQUID GELS 220 MG [Suspect]
     Dosage: UNK, PRN,
     Route: 048

REACTIONS (1)
  - Abdominal discomfort [Recovered/Resolved]
